FAERS Safety Report 8412760-3 (Version None)
Quarter: 2012Q2

REPORT INFORMATION
  Report Type: 
  Country: None (occurrence: None)
  Receive Date: 20120605
  Receipt Date: 20120523
  Transmission Date: 20120825
  Serious: No
  Sender: FDA-Public Use
  Company Number: US-AMGEN-USASP2012032410

PATIENT
  Age: 60 Year
  Sex: Male

DRUGS (1)
  1. ENBREL [Suspect]
     Indication: PSORIATIC ARTHROPATHY
     Dosage: 50 MG, QWK
     Dates: start: 20110601

REACTIONS (6)
  - PRODUCTIVE COUGH [None]
  - NASAL CONGESTION [None]
  - INJECTION SITE PAIN [None]
  - CONDITION AGGRAVATED [None]
  - FATIGUE [None]
  - TOOTH INFECTION [None]
